FAERS Safety Report 8225653-1 (Version None)
Quarter: 2012Q1

REPORT INFORMATION
  Report Type: 
  Country: None (occurrence: None)
  Receive Date: 20120321
  Receipt Date: 20120311
  Transmission Date: 20120608
  Serious: Yes (Hospitalization)
  Sender: FDA-Public Use
  Company Number: US-VERTEX PHARMACEUTICALS INC.-AE-2012-002405

PATIENT
  Sex: Male
  Weight: 64.014 kg

DRUGS (13)
  1. INCIVEK [Suspect]
     Indication: HEPATITIS C
     Route: 048
     Dates: start: 20111206, end: 20120219
  2. RIBASPHERE [Concomitant]
     Route: 048
     Dates: start: 20120211
  3. VALIUM [Concomitant]
     Indication: ANXIETY
     Route: 048
  4. LACTULOSE [Concomitant]
     Indication: PRURITUS
  5. SODIUM CITRATE/CITRIC ACID [Concomitant]
  6. PEGASYS [Concomitant]
     Indication: HEPATITIS C
     Route: 058
     Dates: start: 20111206
  7. CALCIUM CARBONATE [Concomitant]
  8. RIBASPHERE [Concomitant]
     Indication: HEPATITIS C
     Route: 048
     Dates: start: 20111206, end: 20120211
  9. LACTULOSE [Concomitant]
     Indication: RASH
     Route: 048
  10. VITAMIN D [Concomitant]
  11. FLEXERIL [Concomitant]
     Indication: PAIN
     Route: 048
  12. PROVIGIL [Concomitant]
     Indication: NARCOLEPSY
  13. CALCIUM CARBONATE [Concomitant]

REACTIONS (12)
  - STOMATITIS [None]
  - DRY EYE [None]
  - PRURITUS [None]
  - PAIN OF SKIN [None]
  - OCULAR HYPERAEMIA [None]
  - ANAEMIA [None]
  - PHARYNGEAL OEDEMA [None]
  - EYE PRURITUS [None]
  - OROPHARYNGEAL PAIN [None]
  - BLOOD POTASSIUM DECREASED [None]
  - RASH ERYTHEMATOUS [None]
  - ANAL PRURITUS [None]
